FAERS Safety Report 10332850 (Version 1)
Quarter: 2014Q3

REPORT INFORMATION
  Report Type: Spontaneous
  Country: DE (occurrence: DE)
  Receive Date: 20140722
  Receipt Date: 20140722
  Transmission Date: 20150326
  Serious: Yes (Congenital Anomaly)
  Sender: FDA-Public Use
  Company Number: DE-TEVA-494388GER

PATIENT
  Age: 0 Year

DRUGS (2)
  1. FOLSAN [Concomitant]
     Active Substance: FOLIC ACID
     Route: 064
  2. LAMOTRIGIN [Suspect]
     Active Substance: LAMOTRIGINE
     Route: 064

REACTIONS (4)
  - Exomphalos [Not Recovered/Not Resolved]
  - Kyphoscoliosis [Not Recovered/Not Resolved]
  - Umbilical cord short [Not Recovered/Not Resolved]
  - Abortion induced [Unknown]
